FAERS Safety Report 6013766-4 (Version None)
Quarter: 2008Q4

REPORT INFORMATION
  Report Type: 
  Country: None (occurrence: None)
  Receive Date: 20081219
  Receipt Date: 20081216
  Transmission Date: 20090506
  Serious: Yes (Other)
  Sender: FDA-Public Use
  Company Number: B0550963A

PATIENT
  Sex: Female

DRUGS (4)
  1. LAMICTAL [Suspect]
     Indication: BIPOLAR DISORDER
     Dosage: 25MG PER DAY
     Route: 048
     Dates: start: 20080601
  2. CLAMOXYL [Suspect]
     Indication: NASOPHARYNGITIS
     Route: 048
     Dates: start: 20081120, end: 20081130
  3. UTROGESTAN [Concomitant]
  4. ATHYMYL [Concomitant]
     Dosage: 30MG PER DAY

REACTIONS (4)
  - ABDOMINAL PAIN [None]
  - BLOOD AMYLASE INCREASED [None]
  - DIARRHOEA [None]
  - LIPASE INCREASED [None]
